FAERS Safety Report 7960426 (Version 2)
Quarter: 2013Q3

REPORT INFORMATION
  Report Type: Spontaneous
  Country: FR (occurrence: FR)
  Receive Date: 20110525
  Receipt Date: 20130704
  Transmission Date: 20140515
  Serious: Yes (Hospitalization)
  Sender: FDA-Public Use
  Company Number: FR-ROCHE-778355

PATIENT
  Age: 62 Year
  Sex: Female

DRUGS (10)
  1. XELODA [Suspect]
     Indication: BREAST CANCER
     Route: 048
     Dates: start: 201103, end: 20110407
  2. XELODA [Suspect]
     Route: 065
  3. COVERSYL [Concomitant]
     Route: 065
  4. CHLORHYDRATE D^ AMILORIDE [Concomitant]
     Dosage: DRUG REPORTED AS CHLORHYDRATE ACEBUTOLOL.
     Route: 065
  5. LEVOTHYROX [Concomitant]
     Route: 065
  6. TAHOR [Concomitant]
     Route: 065
  7. AMIODARONE [Concomitant]
  8. FEMARA [Concomitant]
     Route: 065
  9. ESIDREX [Concomitant]
     Route: 065
  10. ARIXTRA [Concomitant]
     Dosage: DOSE REPORTED AS 7.5MG/0.6ML. PRE-FILLED SYRINGES.
     Route: 065

REACTIONS (5)
  - Vomiting [Recovered/Resolved]
  - Diarrhoea [Recovered/Resolved]
  - Abdominal pain [Recovered/Resolved]
  - Renal failure acute [Recovered/Resolved]
  - Dehydration [Recovered/Resolved]
